FAERS Safety Report 12075966 (Version 12)
Quarter: 2019Q4

REPORT INFORMATION
  Report Type: Spontaneous
  Country: CA (occurrence: CA)
  Receive Date: 20160214
  Receipt Date: 20191224
  Transmission Date: 20200122
  Serious: Yes (Hospitalization, Other)
  Sender: FDA-Public Use
  Company Number: CA-ROCHE-1709913

PATIENT
  Age: 65 Year
  Sex: Female

DRUGS (5)
  1. SYMBICORT [Concomitant]
     Active Substance: BUDESONIDE\FORMOTEROL FUMARATE DIHYDRATE
     Indication: PRODUCT USED FOR UNKNOWN INDICATION
     Route: 065
  2. VENTOLIN [Concomitant]
     Active Substance: ALBUTEROL SULFATE
     Indication: PRODUCT USED FOR UNKNOWN INDICATION
     Route: 065
  3. XOLAIR [Suspect]
     Active Substance: OMALIZUMAB
     Dosage: UNK
     Route: 058
     Dates: start: 2017
  4. PREDNISONE. [Concomitant]
     Active Substance: PREDNISONE
     Indication: PRODUCT USED FOR UNKNOWN INDICATION
     Route: 065
  5. XOLAIR [Suspect]
     Active Substance: OMALIZUMAB
     Indication: ASTHMA
     Route: 058
     Dates: start: 20130522

REACTIONS (25)
  - Dysphonia [Unknown]
  - Throat clearing [Unknown]
  - Cough [Unknown]
  - Asthma [Recovering/Resolving]
  - Perfume sensitivity [Not Recovered/Not Resolved]
  - Restrictive pulmonary disease [Unknown]
  - Wheezing [Not Recovered/Not Resolved]
  - Insomnia [Unknown]
  - Ill-defined disorder [Unknown]
  - Forced expiratory volume decreased [Not Recovered/Not Resolved]
  - Smoke sensitivity [Not Recovered/Not Resolved]
  - Chest discomfort [Not Recovered/Not Resolved]
  - Sinus congestion [Unknown]
  - Obstructive airways disorder [Recovering/Resolving]
  - Dyspnoea [Not Recovered/Not Resolved]
  - Functional residual capacity decreased [Unknown]
  - Total lung capacity decreased [Unknown]
  - Middle insomnia [Not Recovered/Not Resolved]
  - Vital capacity abnormal [Unknown]
  - Influenza [Unknown]
  - Dust allergy [Not Recovered/Not Resolved]
  - Sensitivity to weather change [Not Recovered/Not Resolved]
  - Forced vital capacity decreased [Recovering/Resolving]
  - Upper-airway cough syndrome [Unknown]
  - Weight decreased [Unknown]

NARRATIVE: CASE EVENT DATE: 2015
